FAERS Safety Report 5503649-8 (Version None)
Quarter: 2007Q4

REPORT INFORMATION
  Report Type: 
  Country: None (occurrence: None)
  Receive Date: 20071101
  Receipt Date: 20071030
  Transmission Date: 20080405
  Serious: Yes (Hospitalization, Other)
  Sender: FDA-Public Use
  Company Number: PHEH2007US13433

PATIENT
  Age: 74 Year
  Sex: Male

DRUGS (6)
  1. EXJADE [Suspect]
     Indication: IRON OVERLOAD
     Dosage: 1500 MG, QD
     Route: 048
     Dates: start: 20070223, end: 20070926
  2. ENALAPRIL MALEATE [Concomitant]
  3. ASPIRIN [Concomitant]
     Dosage: 81 MG, UNK
  4. PRILOSEC [Concomitant]
  5. TYLENOL (CAPLET) [Concomitant]
  6. HYDREA [Concomitant]
     Dosage: 1000 MG, QD

REACTIONS (12)
  - BRAIN OEDEMA [None]
  - CEREBRAL HAEMATOMA [None]
  - COMPUTERISED TOMOGRAM ABNORMAL [None]
  - ENDOSCOPY [None]
  - GASTRITIS HAEMORRHAGIC [None]
  - HAEMATOCRIT DECREASED [None]
  - HAEMORRHAGIC STROKE [None]
  - HEMIPLEGIA [None]
  - NUCLEAR MAGNETIC RESONANCE IMAGING ABNORMAL [None]
  - RECTAL HAEMORRHAGE [None]
  - THALAMUS HAEMORRHAGE [None]
  - WHITE BLOOD CELL COUNT INCREASED [None]
